FAERS Safety Report 15551010 (Version 1)
Quarter: 2018Q4

REPORT INFORMATION
  Report Type: Spontaneous
  Country: RO (occurrence: RO)
  Receive Date: 20181025
  Receipt Date: 20181025
  Transmission Date: 20190205
  Serious: Yes (Other)
  Sender: FDA-Public Use
  Company Number: RO-PFIZER INC-2018434299

PATIENT
  Age: 65 Year
  Sex: Male
  Weight: 72 kg

DRUGS (6)
  1. EUTHYROX [Concomitant]
     Active Substance: LEVOTHYROXINE SODIUM
     Dosage: 100 UG, 1X/DAY, IN THE MORNING
  2. SUTENT [Suspect]
     Active Substance: SUNITINIB MALATE
     Indication: RENAL NEOPLASM
     Dosage: 37.5 MG, CYCLIC, 28 DAYS OF TREATMENT WITH 14 DAYS OF PAUSE
     Dates: start: 20170228, end: 20181015
  3. ZOLEDRONIC ACID. [Concomitant]
     Active Substance: ZOLEDRONIC ACID
     Dosage: 4 MG/ 100 ML, UNK, PERFUSION
     Route: 042
     Dates: start: 20180925
  4. TERTENSIF [Concomitant]
     Active Substance: INDAPAMIDE
     Dosage: 2.5 MG, 1X/DAY, IN THE MORNING
  5. NORVASC [Concomitant]
     Active Substance: AMLODIPINE BESYLATE
     Dosage: 5 MG, 1X/DAY, IN THE EVENING
  6. ATACAND [Concomitant]
     Active Substance: CANDESARTAN CILEXETIL
     Dosage: 8 MG, 1X/DAY, IN THE EVENING

REACTIONS (6)
  - Abdominal distension [Unknown]
  - Intestinal obstruction [Unknown]
  - Ascites [Unknown]
  - Colitis [Unknown]
  - Abdominal pain [Unknown]
  - Constipation [Unknown]

NARRATIVE: CASE EVENT DATE: 20181007
